FAERS Safety Report 7645645-0 (Version None)
Quarter: 2011Q3

REPORT INFORMATION
  Report Type: 
  Country: None (occurrence: None)
  Receive Date: 20110729
  Receipt Date: 20110728
  Transmission Date: 20111222
  Serious: Yes (Other)
  Sender: FDA-Public Use
  Company Number: US-PFIZER INC-2011172491

PATIENT
  Age: 63 Year
  Sex: Female

DRUGS (8)
  1. EFFEXOR XR [Suspect]
     Dosage: 75 MG, DAILY
     Route: 048
     Dates: start: 20090901, end: 20091201
  2. EFFEXOR XR [Suspect]
     Dosage: 150 MG, DAILY
     Route: 048
     Dates: start: 20091202
  3. METOPROLOL [Concomitant]
     Indication: HYPERTENSION
     Dosage: UNK
  4. NORVASC [Concomitant]
     Indication: HYPERTENSION
     Dosage: UNK
     Route: 048
  5. LEXAPRO [Concomitant]
     Indication: DEPRESSION
     Dosage: 10 MG, 1X/DAY
     Route: 048
  6. DILAUDID [Concomitant]
     Indication: BACK DISORDER
     Dosage: UNK
  7. EFFEXOR XR [Suspect]
     Indication: DEPRESSION
     Dosage: 37.5 MG, DAILY
     Route: 048
     Dates: start: 20090921, end: 20090901
  8. LISINOPRIL [Concomitant]
     Indication: HYPERTENSION
     Dosage: UNK

REACTIONS (1)
  - NEUROPATHY PERIPHERAL [None]
